FAERS Safety Report 4290039-1 (Version None)
Quarter: 2004Q1

REPORT INFORMATION
  Report Type: 
  Country: None (occurrence: None)
  Receive Date: 20040209
  Receipt Date: 20040130
  Transmission Date: 20041129
  Serious: Yes (Hospitalization)
  Sender: FDA-Public Use
  Company Number: US064827

PATIENT
  Age: 83 Year
  Sex: Female

DRUGS (18)
  1. ENBREL [Suspect]
     Indication: RHEUMATOID ARTHRITIS
     Dosage: 25 MG, 2 IN 1 WEEKS, SC
     Route: 058
     Dates: start: 20000208
  2. PREDNISONE [Concomitant]
  3. OMEPRAZOLE [Concomitant]
  4. ATENOLOL [Concomitant]
  5. THYROID TAB [Concomitant]
  6. TUMS [Concomitant]
  7. ACETYLSALICYLIC ACID SRT [Concomitant]
  8. CAPTOPRIL [Concomitant]
  9. CALCITONIN-SALMON [Concomitant]
  10. NIFEDIPINE [Concomitant]
  11. ACETAMINOPHEN [Concomitant]
  12. FUROSEMIDE [Concomitant]
  13. VICODIN [Concomitant]
  14. WARFARIN SODIUM [Concomitant]
  15. NYSTATIN [Concomitant]
  16. ANUSOL HC [Concomitant]
  17. MULTI-VITAMINS [Concomitant]
  18. PANTOPRAZOLE SODIUM [Concomitant]

REACTIONS (2)
  - HAEMATOCRIT DECREASED [None]
  - HIP FRACTURE [None]
